FAERS Safety Report 6387933-4 (Version None)
Quarter: 2009Q4

REPORT INFORMATION
  Report Type: 
  Country: None (occurrence: None)
  Receive Date: 20091005
  Receipt Date: 20090925
  Transmission Date: 20100525
  Serious: Yes (Life-Threatening, Hospitalization)
  Sender: FDA-Public Use
  Company Number: PH-AMGEN-QUU366515

PATIENT
  Sex: Male

DRUGS (10)
  1. NEULASTA [Suspect]
     Indication: CHEMOTHERAPY
     Route: 058
     Dates: start: 20090914, end: 20090914
  2. MESNA [Concomitant]
     Dates: start: 20090903, end: 20090905
  3. ZINC [Concomitant]
  4. PLASIL ENZIMATICO [Concomitant]
  5. PREVACID [Concomitant]
  6. ALLOPURINOL [Concomitant]
  7. FLAGYL [Concomitant]
  8. IFOSFAMIDE [Concomitant]
     Dates: start: 20090903, end: 20090905
  9. CARBOPLATIN [Concomitant]
     Dates: start: 20090903, end: 20090905
  10. ETOPOSIDE [Concomitant]
     Dates: start: 20090903, end: 20090905

REACTIONS (1)
  - FEBRILE NEUTROPENIA [None]
